FAERS Safety Report 7756686 (Version 3)
Quarter: 2014Q2

REPORT INFORMATION
  Report Type: Spontaneous
  Country: FR (occurrence: FR)
  Receive Date: 20110112
  Receipt Date: 20140519
  Transmission Date: 20141212
  Serious: Yes (Death, Other)
  Sender: FDA-Public Use
  Company Number: FR-PFIZER INC-2011003441

PATIENT
  Age: 88 Year
  Sex: Male

DRUGS (5)
  1. DALACINE [Suspect]
     Indication: OSTEITIS
     Dosage: 300 MG, 6X/DAY
     Route: 048
     Dates: start: 20101012, end: 20101121
  2. NEURONTIN [Suspect]
     Dosage: 400 MG, 3X/DAY
     Route: 048
  3. FUCIDINE [Suspect]
     Indication: OSTEITIS
     Dosage: 250 MG, 6X/DAY
     Route: 048
     Dates: start: 20101012, end: 20101121
  4. PREVISCAN [Suspect]
     Dosage: 1 DF, 1X/DAY
     Route: 048
     Dates: start: 201009
  5. LANSOPRAZOLE [Suspect]
     Dosage: UNK
     Route: 048
     Dates: start: 20101005, end: 20101121

REACTIONS (4)
  - Rhabdomyolysis [Fatal]
  - Renal failure [Fatal]
  - Liver injury [Fatal]
  - Septic shock [Not Recovered/Not Resolved]
